FAERS Safety Report 5828626-9 (Version None)
Quarter: 2008Q3

REPORT INFORMATION
  Report Type: 
  Country: None (occurrence: None)
  Receive Date: 20080731
  Receipt Date: 20080723
  Transmission Date: 20090109
  Serious: Yes (Other)
  Sender: FDA-Public Use
  Company Number: A0740565A

PATIENT
  Age: 24 Year
  Sex: Male

DRUGS (3)
  1. LAMICTAL [Suspect]
     Dosage: 175MG PER DAY
     Route: 048
  2. CLONAZEPAM [Suspect]
     Dosage: 1MG TWICE PER DAY
     Route: 048
     Dates: start: 20080309
  3. TRILEPTAL [Suspect]
     Route: 048

REACTIONS (9)
  - AURA [None]
  - CONVULSION [None]
  - DYSKINESIA [None]
  - ERYTHEMA [None]
  - FLASHBACK [None]
  - HALLUCINATION, AUDITORY [None]
  - MYDRIASIS [None]
  - PSYCHOTIC BEHAVIOUR [None]
  - THERAPEUTIC RESPONSE DECREASED [None]
